FAERS Safety Report 15029071 (Version 1)
Quarter: 2018Q2

REPORT INFORMATION
  Report Type: Spontaneous
  Country: US (occurrence: US)
  Receive Date: 20180529
  Receipt Date: 20180529
  Transmission Date: 20180711
  Serious: Yes (Death)
  Sender: FDA-Public Use
  Company Number: None

PATIENT
  Age: 75 Year
  Sex: Female

DRUGS (2)
  1. APREPITANT TRIFOLD PACK [Suspect]
     Active Substance: APREPITANT
     Dosage: ?          OTHER FREQUENCY:DAY 1,2 +3;?
     Route: 048
     Dates: start: 20171108
  2. NEULASTA [Suspect]
     Active Substance: PEGFILGRASTIM
     Indication: PANCREATIC CARCINOMA
     Dosage: ?          OTHER FREQUENCY:EVERY 2 WEEKS ;?
     Route: 058
     Dates: start: 20170814

REACTIONS (1)
  - Death [None]

NARRATIVE: CASE EVENT DATE: 20180529
